FAERS Safety Report 23122487 (Version 1)
Quarter: 2023Q4

REPORT INFORMATION
  Report Type: Report from Study
  Country: US (occurrence: US)
  Receive Date: 20231030
  Receipt Date: 20231030
  Transmission Date: 20240110
  Serious: No
  Sender: FDA-Public Use
  Company Number: US-002147023-NVSC2023US229558

PATIENT
  Age: 27 Year
  Sex: Female

DRUGS (1)
  1. VIJOICE [Suspect]
     Active Substance: ALPELISIB
     Indication: PIK3CA related overgrowth spectrum
     Dosage: 125 MG, QD
     Route: 048
     Dates: start: 20221129

REACTIONS (1)
  - Maternal exposure timing unspecified [Unknown]
